FAERS Safety Report 14942286 (Version 1)
Quarter: 2018Q2

REPORT INFORMATION
  Report Type: Report from Study
  Country: None (occurrence: CA)
  Receive Date: 20180528
  Receipt Date: 20180528
  Transmission Date: 20180711
  Serious: Yes (Hospitalization)
  Sender: FDA-Public Use
  Company Number: CA-ABBVIE-18K-028-2334021-00

PATIENT
  Sex: Female

DRUGS (1)
  1. HUMIRA [Suspect]
     Active Substance: ADALIMUMAB
     Indication: CROHN^S DISEASE
     Route: 058
     Dates: start: 20140610, end: 20180421

REACTIONS (5)
  - Flank pain [Recovered/Resolved]
  - Arthralgia [Not Recovered/Not Resolved]
  - Pleurisy [Unknown]
  - Drug level decreased [Unknown]
  - Histone antibody positive [Unknown]

NARRATIVE: CASE EVENT DATE: 2018
